FAERS Safety Report 4998477-6 (Version None)
Quarter: 2006Q2

REPORT INFORMATION
  Report Type: 
  Country: None (occurrence: None)
  Receive Date: 20060508
  Receipt Date: 20060424
  Transmission Date: 20061013
  Serious: Yes (Other)
  Sender: FDA-Public Use
  Company Number: 2006056490

PATIENT
  Age: 74 Year
  Sex: Female

DRUGS (8)
  1. PREDNISOLONE [Suspect]
     Indication: ILL-DEFINED DISORDER
     Dosage: UNK (4 IN 1 D); INTRAOCULAR
     Route: 031
  2. BUPIVACAINE [Suspect]
     Indication: LOCAL ANAESTHESIA
     Dosage: UNKNOWN (4 ML)
  3. LIDOCAINE [Suspect]
     Indication: LOCAL ANAESTHESIA
     Dosage: UNK (4ML),
  4. CHLORAMPHENICOL [Suspect]
     Indication: ILL-DEFINED DISORDER
     Dosage: UNKNOWN (4 IN 1 D);
  5. HYALURONIDASE [Suspect]
     Indication: LOCAL ANAESTHESIA
     Dosage: UNKNOWN (500 I.U.);
  6. POVIDONE IODINE [Suspect]
     Indication: ENDOPHTHALMITIS
     Dosage: UNKNOWN; INTRAOCULAR
     Route: 031
  7. ANAESTHETICS FOR TOPICAL USE [Concomitant]
  8. CEFUROXIME [Concomitant]

REACTIONS (10)
  - BODY TEMPERATURE DECREASED [None]
  - CATARACT OPERATION [None]
  - CONJUNCTIVAL OEDEMA [None]
  - EXOPHTHALMOS [None]
  - EYE OPERATION COMPLICATION [None]
  - EYE PAIN [None]
  - INTRAOCULAR PRESSURE INCREASED [None]
  - MASS [None]
  - PAROPHTHALMIA [None]
  - POST PROCEDURAL COMPLICATION [None]
